FAERS Safety Report 11314351 (Version 1)
Quarter: 2015Q3

REPORT INFORMATION
  Report Type: Spontaneous
  Country: NG (occurrence: NG)
  Receive Date: 20150727
  Receipt Date: 20150727
  Transmission Date: 20151125
  Serious: Yes (Other)
  Sender: FDA-Public Use
  Company Number: NG-AMEDRA PHARMACEUTICALS LLC-2015AMD00147

PATIENT
  Age: 28 Year
  Sex: Female

DRUGS (4)
  1. BUPIVACAINE [Suspect]
     Active Substance: BUPIVACAINE
     Indication: NERVE BLOCK
     Dosage: 0.5%, 10 ML
  2. LIDOCAINE. [Suspect]
     Active Substance: LIDOCAINE
     Indication: NERVE BLOCK
     Dosage: 2%, ONCE
  3. EPINEPHRINE. [Suspect]
     Active Substance: EPINEPHRINE
     Indication: NERVE BLOCK
     Dosage: UNK, ONCE
  4. LIDOCAINE. [Suspect]
     Active Substance: LIDOCAINE
     Dosage: 2%, 10 ML

REACTIONS (6)
  - Seizure [Recovered/Resolved]
  - Incorrect route of drug administration [Recovered/Resolved]
  - Generalised tonic-clonic seizure [None]
  - Heart rate increased [None]
  - Blood pressure decreased [None]
  - Procedural complication [None]
